FAERS Safety Report 8262216 (Version 2)
Quarter: 2014Q2

REPORT INFORMATION
  Report Type: Spontaneous
  Country: US (occurrence: US)
  Receive Date: 20111123
  Receipt Date: 20140527
  Transmission Date: 20141212
  Serious: Yes (Hospitalization, Other)
  Sender: FDA-Public Use
  Company Number: US-ASTRAZENECA-2011SE70028

PATIENT
  Age: 56 Year
  Sex: Male
  Weight: 100.7 kg

DRUGS (7)
  1. NEXIUM [Suspect]
     Indication: DYSPHAGIA
     Route: 048
     Dates: start: 2009
  2. VICODIN [Concomitant]
     Indication: LIMB DISCOMFORT
     Dosage: 10/325, ONE TABLET AS PER NEEDED
     Route: 048
     Dates: start: 2013
  3. METABULIM [Concomitant]
     Indication: HEART RATE INCREASED
     Route: 048
     Dates: start: 201405
  4. METFORMIN [Concomitant]
     Indication: DIABETES MELLITUS
     Dosage: TWO TIMES DAILY
     Route: 048
     Dates: start: 2011
  5. GLUCOTROL [Concomitant]
     Indication: DIABETES MELLITUS
     Route: 048
     Dates: start: 2007
  6. BUSPARION [Concomitant]
     Indication: ANXIETY
     Route: 048
     Dates: start: 2009
  7. OXYCODONE [Concomitant]
     Indication: LIMB DISCOMFORT
     Dosage: 10/325, ONE TABLET AS PER NEEDED
     Route: 048
     Dates: start: 2013

REACTIONS (4)
  - Pancreatitis [Recovered/Resolved]
  - Pharyngeal oedema [Unknown]
  - Drug dose omission [Unknown]
  - Off label use [Unknown]
